FAERS Safety Report 4400590-9 (Version None)
Quarter: 2004Q3

REPORT INFORMATION
  Report Type: 
  Country: None (occurrence: None)
  Receive Date: 20040719
  Receipt Date: 20040126
  Transmission Date: 20050211
  Serious: Yes (Other)
  Sender: FDA-Public Use
  Company Number: US-BRISTOL-MYERS SQUIBB COMPANY-12487039

PATIENT
  Age: 10 Year
  Sex: Female
  Weight: 70 kg

DRUGS (2)
  1. ABILIFY [Suspect]
     Indication: ASPERGER'S DISORDER
     Route: 048
     Dates: start: 20021216, end: 20040107
  2. LEXAPRO [Suspect]
     Indication: ANXIETY
     Route: 048
     Dates: start: 20030510, end: 20040107

REACTIONS (10)
  - ACNE [None]
  - CONSTIPATION [None]
  - DYSKINESIA [None]
  - FEAR [None]
  - GLUCOSE TOLERANCE IMPAIRED [None]
  - INSULIN RESISTANCE [None]
  - NIGHTMARE [None]
  - POLYCYSTIC OVARIES [None]
  - SLEEP DISORDER [None]
  - WEIGHT INCREASED [None]
